FAERS Safety Report 10787603 (Version 4)
Quarter: 2015Q2

REPORT INFORMATION
  Report Type: Spontaneous
  Country: BR (occurrence: BR)
  Receive Date: 20150212
  Receipt Date: 20150430
  Transmission Date: 20150821
  Serious: Yes (Hospitalization, Disabling, Other)
  Sender: FDA-Public Use
  Company Number: BR-ASTRAZENECA-2015SE12400

PATIENT
  Age: 72 Year
  Sex: Female

DRUGS (8)
  1. PANTOPRAZOLE [Concomitant]
     Active Substance: PANTOPRAZOLE SODIUM
     Indication: GASTRITIS
     Dosage: IN FASTING STATE, 40 MG EVERY MORNING
  2. CALTREN [Concomitant]
     Active Substance: NITRENDIPINE
     Indication: BLOOD PRESSURE ABNORMAL
     Dates: start: 201503
  3. ATACAND HCT [Suspect]
     Active Substance: CANDESARTAN CILEXETIL\HYDROCHLOROTHIAZIDE
     Indication: BLOOD PRESSURE INCREASED
     Dosage: 16/12.5 MG
     Route: 048
     Dates: end: 20150205
  4. ALPRAZOLAM. [Concomitant]
     Active Substance: ALPRAZOLAM
     Indication: SLEEP DISORDER
     Route: 048
  5. OMEPRAZOLE. [Suspect]
     Active Substance: OMEPRAZOLE
     Indication: GASTRITIS
     Route: 048
  6. NEUTROFER FOLICO [Concomitant]
     Indication: ANAEMIA
     Dates: start: 2014
  7. ATACAND [Suspect]
     Active Substance: CANDESARTAN CILEXETIL
     Indication: BLOOD PRESSURE ABNORMAL
     Route: 048
  8. NEUTROFER FOLICO [Concomitant]
     Indication: VITAMIN B12 DECREASED
     Dates: start: 2014

REACTIONS (15)
  - Upper limb fracture [Recovered/Resolved with Sequelae]
  - Blood urea increased [Unknown]
  - Drug ineffective [Recovered/Resolved]
  - Anaemia [Recovered/Resolved]
  - Blood pressure increased [Recovered/Resolved]
  - Fall [Recovered/Resolved]
  - Gout [Recovered/Resolved]
  - Vitamin B12 decreased [Unknown]
  - Hypertension [Recovered/Resolved]
  - Blood creatinine increased [Unknown]
  - Joint range of motion decreased [Recovered/Resolved]
  - Pain in extremity [Not Recovered/Not Resolved]
  - Diarrhoea [Recovered/Resolved]
  - Chest pain [Recovered/Resolved]
  - Amoebiasis [Not Recovered/Not Resolved]

NARRATIVE: CASE EVENT DATE: 2014
